FAERS Safety Report 21064188 (Version 1)
Quarter: 2022Q3

REPORT INFORMATION
  Report Type: Spontaneous
  Country: IE (occurrence: None)
  Receive Date: 20220709
  Receipt Date: 20220709
  Transmission Date: 20221027
  Serious: Yes (Life-Threatening, Other)
  Sender: FDA-Public Use
  Company Number: None

PATIENT
  Age: 42 Year
  Sex: Female
  Weight: 70.2 kg

DRUGS (5)
  1. RINVOQ [Suspect]
     Active Substance: UPADACITINIB
     Indication: Psoriatic arthropathy
     Dosage: OTHER QUANTITY : 1 TABLET(S);?
     Route: 048
     Dates: start: 20220623, end: 20220709
  2. XPRIM [Concomitant]
  3. CYMBALTA [Concomitant]
  4. CATAFLAM [Concomitant]
  5. OESTRODOT [Concomitant]

REACTIONS (3)
  - Blood pressure increased [None]
  - Chest discomfort [None]
  - Discomfort [None]

NARRATIVE: CASE EVENT DATE: 20220708
